FAERS Safety Report 15785717 (Version 1)
Quarter: 2019Q1

REPORT INFORMATION
  Report Type: Spontaneous
  Country: CN (occurrence: CN)
  Receive Date: 20190103
  Receipt Date: 20190103
  Transmission Date: 20190417
  Serious: Yes (Hospitalization)
  Sender: FDA-Public Use
  Company Number: CN-BAYER-2018-246025

PATIENT
  Age: 55 Year
  Sex: Male
  Weight: 70 kg

DRUGS (2)
  1. NADROPARIN CALCIUM [Suspect]
     Active Substance: NADROPARIN CALCIUM
     Indication: COAGULOPATHY
     Dosage: 6150 IU, BID
     Route: 057
     Dates: start: 20181017, end: 20181021
  2. BAYASPIRIN 100 MG [Suspect]
     Active Substance: ASPIRIN
     Indication: PLATELET AGGREGATION INHIBITION
     Dosage: 100 MG, QD
     Route: 048
     Dates: start: 20141022, end: 20181020

REACTIONS (2)
  - Platelet count decreased [Recovering/Resolving]
  - Epistaxis [Recovering/Resolving]

NARRATIVE: CASE EVENT DATE: 20181020
